FAERS Safety Report 7808024-9 (Version None)
Quarter: 2011Q4

REPORT INFORMATION
  Report Type: 
  Country: None (occurrence: None)
  Receive Date: 20111011
  Receipt Date: 20111005
  Transmission Date: 20120403
  Serious: Yes (Other)
  Sender: FDA-Public Use
  Company Number: DE-B.I. PHARMACEUTICALS,INC./RIDGEFIELD-2011-DE-05611DE

PATIENT
  Sex: Male
  Weight: 80 kg

DRUGS (3)
  1. NIFEDIPINE [Suspect]
     Route: 048
  2. MIRTAZAPINE [Suspect]
     Route: 048
  3. MICARDIS HCT [Suspect]
     Dosage: 80/12.5
     Route: 048

REACTIONS (2)
  - SOMNOLENCE [None]
  - SUICIDE ATTEMPT [None]
